FAERS Safety Report 17926068 (Version 4)
Quarter: 2020Q3

REPORT INFORMATION
  Report Type: Report from Study
  Country: US (occurrence: US)
  Receive Date: 20200622
  Receipt Date: 20200808
  Transmission Date: 20201103
  Serious: Yes (Other)
  Sender: FDA-Public Use
  Company Number: NVSC2020US174970

PATIENT
  Sex: Female

DRUGS (1)
  1. KISQALI [Suspect]
     Active Substance: RIBOCICLIB
     Indication: PRODUCT USED FOR UNKNOWN INDICATION
     Dosage: UNK
     Route: 048

REACTIONS (6)
  - Full blood count decreased [Unknown]
  - Drug ineffective [Unknown]
  - Neoplasm progression [Unknown]
  - Cough [Unknown]
  - Nerve injury [Unknown]
  - Cardiovascular disorder [Unknown]
